FAERS Safety Report 11706477 (Version 2)
Quarter: 2015Q4

REPORT INFORMATION
  Report Type: Spontaneous
  Country: US (occurrence: US)
  Receive Date: 20151104
  Receipt Date: 20151110
  Transmission Date: 20160304
  Serious: No
  Sender: FDA-Public Use
  Company Number: US-ELI_LILLY_AND_COMPANY-US201101002717

PATIENT
  Age: 57 Year
  Sex: Female

DRUGS (9)
  1. FORTEO [Suspect]
     Active Substance: TERIPARATIDE
     Dosage: 20 UG, QD
  2. FORTEO [Suspect]
     Active Substance: TERIPARATIDE
     Dosage: 20 UG, QD
  3. AMBIEN [Concomitant]
     Active Substance: ZOLPIDEM TARTRATE
     Indication: INSOMNIA
     Dosage: UNK, UNKNOWN
  4. DIFFERIN [Concomitant]
     Active Substance: ADAPALENE
     Indication: ACNE
  5. FORTEO [Suspect]
     Active Substance: TERIPARATIDE
     Indication: OSTEOPOROSIS
     Dosage: 20 UG, DAILY (1/D)
     Dates: start: 20110104
  6. CLINDAMYCIN [Concomitant]
     Active Substance: CLINDAMYCIN\CLINDAMYCIN PHOSPHATE
     Indication: ACNE
  7. FORTEO [Suspect]
     Active Substance: TERIPARATIDE
     Dosage: 20 UG, QD
     Dates: end: 20110907
  8. VITAMIN B12 [Concomitant]
     Active Substance: CYANOCOBALAMIN
     Indication: MULTIPLE SCLEROSIS
     Dosage: UNK, 2/W
  9. COPAXONE [Concomitant]
     Active Substance: GLATIRAMER ACETATE

REACTIONS (23)
  - Urine ketone body present [Unknown]
  - Muscle spasms [Unknown]
  - Myalgia [Unknown]
  - Insomnia [Unknown]
  - Oral pain [Unknown]
  - Dry mouth [Not Recovered/Not Resolved]
  - Skin disorder [Recovered/Resolved]
  - Contusion [Recovered/Resolved]
  - Feeling abnormal [Unknown]
  - Constipation [Not Recovered/Not Resolved]
  - Oral candidiasis [Recovered/Resolved]
  - Dermatitis contact [Unknown]
  - Dizziness [Unknown]
  - Dehydration [Unknown]
  - Dysuria [Unknown]
  - Headache [Unknown]
  - Teething [Recovered/Resolved]
  - Rash [Recovered/Resolved]
  - Asthenia [Unknown]
  - Candida infection [Unknown]
  - Pain in extremity [Unknown]
  - Burning sensation [Unknown]
  - Fatigue [Unknown]

NARRATIVE: CASE EVENT DATE: 201101
